FAERS Safety Report 7747120-1 (Version None)
Quarter: 2011Q3

REPORT INFORMATION
  Report Type: 
  Country: None (occurrence: None)
  Receive Date: 20110913
  Receipt Date: 20110906
  Transmission Date: 20111222
  Serious: Yes (Hospitalization)
  Sender: FDA-Public Use
  Company Number: FR-PFIZER INC-2011207743

PATIENT
  Age: 75 Year
  Sex: Male

DRUGS (5)
  1. LEVOTHYROXINE SODIUM [Concomitant]
     Dosage: LONG TERM
  2. PROPRANOLOL [Concomitant]
     Dosage: LONG TERM
  3. LORAZEPAM [Concomitant]
     Dosage: LONG TERM
  4. ZOCOR [Concomitant]
     Dosage: 20 MG, 1X/DAY LONG TERM
  5. SUTENT [Suspect]
     Indication: RENAL CANCER METASTATIC
     Dosage: 50 MG, CYCLIC, 4 WEEKS OUT OF 6
     Route: 048
     Dates: start: 20060801, end: 20110811

REACTIONS (1)
  - PELIOSIS HEPATIS [None]
